FAERS Safety Report 6457616-0 (Version None)
Quarter: 2009Q4

REPORT INFORMATION
  Report Type: 
  Country: None (occurrence: None)
  Receive Date: 20091024
  Receipt Date: 20091104
  Transmission Date: 20100525
  Serious: Yes (Death)
  Sender: FDA-Public Use
  Company Number: 2009AC000257

PATIENT
  Sex: Female

DRUGS (17)
  1. DIGOXIN [Suspect]
     Dosage: 0.25 MG, PO
     Route: 048
     Dates: start: 20060901
  2. PRECISION [Concomitant]
  3. TUSSTONEX [Concomitant]
  4. CLOTRIM/BETA DIPROP [Concomitant]
  5. GLIPIZIDE [Concomitant]
  6. TEMAZEPAM [Concomitant]
  7. AVANDIA [Concomitant]
  8. LOTREL [Concomitant]
  9. ACTOS [Concomitant]
  10. TAZTIA [Concomitant]
  11. PROPAFENONE [Concomitant]
  12. LEVAQUIN [Concomitant]
  13. NAPROXEN [Concomitant]
  14. PROCHELORPER [Concomitant]
  15. HYDROCODONE BITARTRATE AND ACETAMINOPHEN [Concomitant]
  16. TEMAZEPAM [Concomitant]
  17. METFORMIN HCL [Concomitant]

REACTIONS (19)
  - AORTIC ANEURYSM [None]
  - ARRHYTHMIA [None]
  - ARTHRALGIA [None]
  - BACK PAIN [None]
  - BRONCHITIS [None]
  - CARDIAC FAILURE CONGESTIVE [None]
  - CARDIAC MURMUR [None]
  - DIABETES MELLITUS [None]
  - ECONOMIC PROBLEM [None]
  - FLANK PAIN [None]
  - HYPERTENSION [None]
  - INJURY [None]
  - JOINT SWELLING [None]
  - NAUSEA [None]
  - OROPHARYNGEAL PAIN [None]
  - SEASONAL ALLERGY [None]
  - SURGERY [None]
  - URINARY TRACT INFECTION [None]
  - VIRAL INFECTION [None]
